FAERS Safety Report 5599870-3 (Version None)
Quarter: 2008Q1

REPORT INFORMATION
  Report Type: 
  Country: None (occurrence: None)
  Receive Date: 20080117
  Receipt Date: 20080117
  Transmission Date: 20080703
  Serious: No
  Sender: FDA-Public Use
  Company Number: None

PATIENT
  Sex: Male
  Weight: 78.0187 kg

DRUGS (1)
  1. VANCOMYCIN [Suspect]
     Indication: BRAIN ABSCESS
     Dosage: 1.5GM IV Q 12 HRS
     Route: 042
     Dates: start: 20080107

REACTIONS (1)
  - NEPHRITIS INTERSTITIAL [None]
